FAERS Safety Report 18641568 (Version 2)
Quarter: 2021Q3

REPORT INFORMATION
  Report Type: Other
  Country: CA (occurrence: CA)
  Receive Date: 20201221
  Receipt Date: 20210823
  Transmission Date: 20211014
  Serious: Yes (Other)
  Sender: FDA-Public Use
  Company Number: CA-CELLTRION INC.-2020CA033827

PATIENT

DRUGS (15)
  1. ELTROXIN [Concomitant]
     Active Substance: LEVOTHYROXINE
  2. GLUCOSAMINE [Concomitant]
     Active Substance: GLUCOSAMINE
  3. RITUXIMAB (UNKNOWN) [Suspect]
     Active Substance: RITUXIMAB
     Dosage: 500 MILLIGRAM, 1 EVERY 6 MONTHS
     Route: 042
  4. ERGOCALCIFEROL. [Concomitant]
     Active Substance: ERGOCALCIFEROL
  5. SELENIUM [Concomitant]
     Active Substance: SELENIUM
  6. TAMSULOSIN [Concomitant]
     Active Substance: TAMSULOSIN
  7. TRAZODONE [Concomitant]
     Active Substance: TRAZODONE HYDROCHLORIDE
  8. SULFAMETHOXAZOLE;TRIMIPRAMINE [Concomitant]
  9. ZOPICLONE [Concomitant]
     Active Substance: ZOPICLONE
     Route: 065
  10. MANGANESE [Concomitant]
     Active Substance: MANGANESE CHLORIDE
  11. RANITIDINE. [Concomitant]
     Active Substance: RANITIDINE
  12. SALMON OIL [Concomitant]
     Active Substance: FISH OIL
  13. RITUXIMAB (UNKNOWN) [Suspect]
     Active Substance: RITUXIMAB
     Indication: VASCULITIS
     Dosage: 1000 MILLIGRAM, 1 EVERY 15 DAYS
     Route: 042
  14. PREDNISONE. [Suspect]
     Active Substance: PREDNISONE
     Indication: PRODUCT USED FOR UNKNOWN INDICATION
     Dosage: UNK
     Route: 065
  15. COPPER [Concomitant]
     Active Substance: COPPER

REACTIONS (4)
  - Osteoarthritis [Not Recovered/Not Resolved]
  - Off label use [Not Recovered/Not Resolved]
  - Off label use [Unknown]
  - Cough [Not Recovered/Not Resolved]
